FAERS Safety Report 21493495 (Version 3)
Quarter: 2022Q4

REPORT INFORMATION
  Report Type: Report from Study
  Country: US (occurrence: None)
  Receive Date: 20221021
  Receipt Date: 20221214
  Transmission Date: 20230112
  Serious: Yes (Hospitalization, Disabling, Other)
  Sender: FDA-Public Use
  Company Number: 2022A347393

PATIENT
  Age: 17784 Day
  Sex: Female
  Weight: 83 kg

DRUGS (2)
  1. TEZSPIRE [Suspect]
     Active Substance: TEZEPELUMAB-EKKO
     Indication: Asthma
     Route: 065
     Dates: start: 20220120, end: 20220801
  2. OMEPRAZOLE [Suspect]
     Active Substance: OMEPRAZOLE
     Route: 048

REACTIONS (13)
  - Cellulitis [Unknown]
  - Pyoderma gangrenosum [Unknown]
  - Systemic inflammatory response syndrome [Unknown]
  - Neutropenia [Unknown]
  - Leukopenia [Unknown]
  - Lymphopenia [Unknown]
  - Malaise [Unknown]
  - Night sweats [Unknown]
  - Hepatic enzyme increased [Unknown]
  - Pyrexia [Unknown]
  - White blood cell count decreased [Unknown]
  - Body temperature increased [Unknown]
  - Asthma [Unknown]

NARRATIVE: CASE EVENT DATE: 20220827
